FAERS Safety Report 4823665-9 (Version None)
Quarter: 2005Q4

REPORT INFORMATION
  Report Type: 
  Country: None (occurrence: None)
  Receive Date: 20051109
  Receipt Date: 20051104
  Transmission Date: 20060501
  Serious: Yes (Hospitalization)
  Sender: FDA-Public Use
  Company Number: PL-GLAXOSMITHKLINE-B0399692A

PATIENT
  Age: 7 Month
  Sex: Female

DRUGS (3)
  1. AUGMENTIN '125' [Suspect]
     Route: 048
     Dates: start: 20051003, end: 20051008
  2. BUTETHAMATE CITRATE [Suspect]
  3. HYDROCORTISONE + OXYTETRACYCLINE + POLYMIXIN B SULPHATE [Suspect]

REACTIONS (3)
  - DRUG TOXICITY [None]
  - HYPERSENSITIVITY [None]
  - OEDEMA [None]
